FAERS Safety Report 8276867-6 (Version None)
Quarter: 2012Q2

REPORT INFORMATION
  Report Type: 
  Country: None (occurrence: None)
  Receive Date: 20120412
  Receipt Date: 20120401
  Transmission Date: 20120825
  Serious: Yes (Death, Other)
  Sender: FDA-Public Use
  Company Number: IL-ACTELION-A-CH2010-41629

PATIENT
  Age: 70 Year
  Sex: Female

DRUGS (2)
  1. REVATIO [Concomitant]
  2. TRACLEER [Suspect]
     Indication: PULMONARY ARTERIAL HYPERTENSION
     Dosage: 125 MG, BID
     Route: 048
     Dates: start: 20090101

REACTIONS (4)
  - DEATH [None]
  - FATIGUE [None]
  - WEIGHT DECREASED [None]
  - LUNG NEOPLASM [None]
